FAERS Safety Report 8810093 (Version 1)
Quarter: 2012Q4

REPORT INFORMATION
  Report Type: 
  Country: US (occurrence: US)
  Receive Date: 20120926
  Receipt Date: 20120926
  Transmission Date: 20130627
  Serious: Yes (Death)
  Sender: FDA-Public Use
  Company Number: US-ELI_LILLY_AND_COMPANY-US201209006946

PATIENT
  Age: 59 Year
  Sex: Female

DRUGS (2)
  1. GEMZAR [Suspect]
     Indication: OVARIAN CANCER
     Dosage: 1200 mg, weekly (1/W)
     Dates: start: 20120622, end: 20120806
  2. CARBOPLATIN [Concomitant]
     Indication: OVARIAN CANCER

REACTIONS (2)
  - Death [Fatal]
  - Anaemia [Unknown]
